FAERS Safety Report 6408760-5 (Version None)
Quarter: 2009Q4

REPORT INFORMATION
  Report Type: 
  Country: None (occurrence: None)
  Receive Date: 20091021
  Receipt Date: 20091013
  Transmission Date: 20100525
  Serious: Yes (Death, Hospitalization)
  Sender: FDA-Public Use
  Company Number: A0808057A

PATIENT
  Age: 66 Year
  Sex: Male

DRUGS (1)
  1. AVANDIA [Suspect]
     Indication: DIABETES MELLITUS
     Route: 048
     Dates: end: 20060529

REACTIONS (4)
  - CARDIAC ARREST [None]
  - CARDIOVASCULAR DISORDER [None]
  - CHEST PAIN [None]
  - MYOCARDIAL INFARCTION [None]
